FAERS Safety Report 12449143 (Version 1)
Quarter: 2016Q2

REPORT INFORMATION
  Report Type: Report from Study
  Country: GR (occurrence: GR)
  Receive Date: 20160608
  Receipt Date: 20160608
  Transmission Date: 20160815
  Serious: Yes (Hospitalization)
  Sender: FDA-Public Use
  Company Number: GR-ROCHE-1771387

PATIENT
  Age: 55 Year
  Sex: Male
  Weight: 75 kg

DRUGS (2)
  1. PLAVIX [Concomitant]
     Active Substance: CLOPIDOGREL BISULFATE
     Dosage: 1X1
     Route: 065
  2. ROACTEMRA [Suspect]
     Active Substance: TOCILIZUMAB
     Indication: RHEUMATOID ARTHRITIS
     Route: 058
     Dates: start: 20160420, end: 20160520

REACTIONS (9)
  - Dizziness [Recovered/Resolved]
  - Asthenia [Recovered/Resolved]
  - Blood triglycerides increased [Unknown]
  - Hyperhidrosis [Recovered/Resolved]
  - Blood cholesterol increased [Unknown]
  - Hypertension [Not Recovered/Not Resolved]
  - Blood albumin increased [Unknown]
  - Rheumatoid factor increased [Unknown]
  - Hepatic enzyme increased [Unknown]

NARRATIVE: CASE EVENT DATE: 20160519
